FAERS Safety Report 20477430 (Version 1)
Quarter: 2022Q1

REPORT INFORMATION
  Report Type: Spontaneous
  Country: US (occurrence: US)
  Receive Date: 20220215
  Receipt Date: 20220215
  Transmission Date: 20220423
  Serious: No
  Sender: FDA-Public Use
  Company Number: US-CIPLA LTD.-2021US04454

PATIENT

DRUGS (1)
  1. TENOFOVIR [Suspect]
     Active Substance: TENOFOVIR
     Indication: Antiretroviral therapy
     Dosage: 300 (UNITS UNSPECIFIED), DAILY DOSE, 1 COURSE
     Route: 048

REACTIONS (2)
  - Exposure during pregnancy [Unknown]
  - No adverse event [Unknown]
